FAERS Safety Report 10663941 (Version 1)
Quarter: 2014Q4

REPORT INFORMATION
  Report Type: Spontaneous
  Country: US (occurrence: None)
  Receive Date: 20141217
  Receipt Date: 20141217
  Transmission Date: 20150529
  Serious: Yes (Other)
  Sender: FDA-Public Use
  Company Number: 001841461A

PATIENT
  Age: 51 Year
  Sex: Female

DRUGS (3)
  1. PROACTIVPLUS SKIN SMOOTHING EXFOLIATOR [Suspect]
     Active Substance: BENZOYL PEROXIDE
     Indication: ACNE
     Dosage: ONCE DAILY DERMAL
     Dates: start: 20141027
  2. THYROID MEDICATION [Concomitant]
     Active Substance: UNSPECIFIED INGREDIENT
  3. BIRTH CONTROL PILL [Concomitant]

REACTIONS (4)
  - Throat tightness [None]
  - Pyrexia [None]
  - Urticaria [None]
  - Burning sensation [None]

NARRATIVE: CASE EVENT DATE: 20141027
